FAERS Safety Report 7950586-5 (Version None)
Quarter: 2011Q4

REPORT INFORMATION
  Report Type: 
  Country: None (occurrence: None)
  Receive Date: 20111130
  Receipt Date: 20111117
  Transmission Date: 20120403
  Serious: Yes (Hospitalization, Other)
  Sender: FDA-Public Use
  Company Number: FR-AMGEN-QUU419633

PATIENT
  Age: 65 Year
  Sex: Female

DRUGS (5)
  1. INSULIN [Concomitant]
  2. BISOPROLOL FUMARATE [Concomitant]
  3. LASIX [Concomitant]
  4. ENBREL [Suspect]
     Indication: RHEUMATOID ARTHRITIS
     Dosage: 50 MG, QWK
     Route: 058
     Dates: start: 20100301, end: 20100408
  5. NICARDIPINE HCL [Concomitant]

REACTIONS (11)
  - ENCEPHALOPATHY [None]
  - DEPRESSED LEVEL OF CONSCIOUSNESS [None]
  - INFLAMMATION [None]
  - ESCHERICHIA URINARY TRACT INFECTION [None]
  - CONVULSION [None]
  - ANAEMIA [None]
  - HYPONATRAEMIA [None]
  - HEMIPLEGIA [None]
  - ASPIRATION [None]
  - GASTRIC ULCER [None]
  - HALLUCINATION [None]
